FAERS Safety Report 8735493 (Version 3)
Quarter: 2014Q2

REPORT INFORMATION
  Report Type: Report from Study
  Country: DE (occurrence: DE)
  Receive Date: 20120822
  Receipt Date: 20140627
  Transmission Date: 20141212
  Serious: Yes (Hospitalization)
  Sender: FDA-Public Use
  Company Number: PHHY2011DE105756

PATIENT
  Age: 25 Year
  Sex: Female
  Weight: 63 kg

DRUGS (19)
  1. ILARIS [Suspect]
     Indication: CHRONIC INFANTILE NEUROLOGICAL CUTANEOUS AND ARTICULAR SYNDROME
     Dosage: 300 MG FOR EVERY 8 WEEKS
     Route: 058
     Dates: start: 201006
  2. ILARIS [Suspect]
     Dosage: 300 MG, 5 WEEKLY
     Route: 058
     Dates: start: 201111
  3. ILARIS [Suspect]
     Dates: start: 20120206
  4. LUMIGAN [Concomitant]
     Indication: GLAUCOMA
  5. PREDNI [Concomitant]
     Indication: UVEITIS
  6. CLONID-OPHTAL [Concomitant]
     Indication: GLAUCOMA
  7. TIMO-COMOD [Concomitant]
     Indication: GLAUCOMA
  8. COSOPT [Concomitant]
     Indication: GLAUCOMA
  9. PERILAX [Concomitant]
     Indication: DEPRESSION
     Dosage: 100 MG, QD
     Route: 048
     Dates: start: 2011
  10. VENLAFAXINE [Concomitant]
     Indication: DEPRESSION
     Dosage: 150 MG, QD
     Route: 048
     Dates: start: 2010
  11. DIPIPERON [Concomitant]
     Indication: SLEEP DISORDER
     Dosage: 80 MG, QD
     Route: 048
     Dates: start: 2009
  12. TRENTAL [Concomitant]
     Indication: SUDDEN HEARING LOSS
     Dosage: 800 MG, QD
     Route: 048
     Dates: start: 2009
  13. LYRICA [Concomitant]
     Indication: PAIN
     Dosage: 25 MG, QD
     Route: 048
     Dates: start: 2010
  14. DOMINAL [Concomitant]
     Indication: DEPRESSION
     Dosage: 40 MG, QD
     Route: 048
     Dates: start: 2011
  15. DECORTIN [Concomitant]
     Indication: CHRONIC INFANTILE NEUROLOGICAL CUTANEOUS AND ARTICULAR SYNDROME
     Dosage: 2.5 MG, QD
     Route: 048
     Dates: start: 2011
  16. BECLOMETASONE DIPROPIONATE W/FORMOTEROL FUMARATE [Concomitant]
     Indication: RESPIRATORY DISORDER
     Dosage: 200 UG, QD
     Route: 048
     Dates: start: 2011
  17. KINERET [Concomitant]
     Dates: start: 201202
  18. PREDNISONE [Concomitant]
  19. INTERLEUKIN-1 [Concomitant]

REACTIONS (5)
  - Epilepsy [Recovered/Resolved]
  - Glaucoma [Recovered/Resolved]
  - Meningitis [Recovered/Resolved]
  - Intracranial pressure increased [Recovered/Resolved]
  - Postictal state [Recovered/Resolved]
